FAERS Safety Report 7315475-8 (Version None)
Quarter: 2011Q1

REPORT INFORMATION
  Report Type: 
  Country: None (occurrence: None)
  Receive Date: 20110225
  Receipt Date: 20110223
  Transmission Date: 20110831
  Serious: Yes (Hospitalization)
  Sender: FDA-Public Use
  Company Number: JP-PFIZER INC-2011038911

PATIENT
  Age: 45 Year
  Sex: Female

DRUGS (1)
  1. AMLODIPINE BESYLATE [Suspect]
     Dosage: 400 MG, UNK
     Route: 048

REACTIONS (3)
  - NON-CARDIOGENIC PULMONARY OEDEMA [None]
  - OVERDOSE [None]
  - HYPOTENSION [None]
